FAERS Safety Report 19457734 (Version 2)
Quarter: 2022Q1

REPORT INFORMATION
  Report Type: Report from Study
  Country: CO (occurrence: CO)
  Receive Date: 20210624
  Receipt Date: 20220314
  Transmission Date: 20220423
  Serious: Yes (Other)
  Sender: FDA-Public Use
  Company Number: CO-NOVARTISPH-NVSC2021CO083706

PATIENT
  Sex: Female

DRUGS (1)
  1. KISQALI [Suspect]
     Active Substance: RIBOCICLIB
     Indication: Breast cancer metastatic
     Dosage: 600 MG, QD
     Route: 048

REACTIONS (5)
  - Brain neoplasm [Unknown]
  - Cancer pain [Unknown]
  - Illness [Unknown]
  - Dizziness [Unknown]
  - Headache [Unknown]
